FAERS Safety Report 17284549 (Version 1)
Quarter: 2020Q1

REPORT INFORMATION
  Report Type: Spontaneous
  Country: NL (occurrence: FR)
  Receive Date: 20200117
  Receipt Date: 20200117
  Transmission Date: 20200409
  Serious: Yes (Other)
  Sender: FDA-Public Use
  Company Number: FR-FRESENIUS KABI-FK202000459

PATIENT
  Age: 3 Day
  Sex: Female
  Weight: .75 kg

DRUGS (1)
  1. ROPIVACAINE FRESENIUS KABI (NOT SPECIFIED) [Suspect]
     Active Substance: ROPIVACAINE
     Indication: PRODUCT USED FOR UNKNOWN INDICATION
     Route: 041
     Dates: start: 20190923, end: 20190924

REACTIONS (3)
  - Wrong dose [Recovered/Resolved]
  - Product prescribing error [Recovered/Resolved]
  - Ventricular extrasystoles [Recovered/Resolved]

NARRATIVE: CASE EVENT DATE: 20190922
